FAERS Safety Report 9258829 (Version 3)
Quarter: 2014Q4

REPORT INFORMATION
  Report Type: Spontaneous
  Country: DK (occurrence: DK)
  Receive Date: 20130426
  Receipt Date: 20141014
  Transmission Date: 20150529
  Serious: Yes (Other)
  Sender: FDA-Public Use
  Company Number: DK-TEVA-399774ISR

PATIENT
  Age: 66 Year
  Sex: Female
  Weight: 70 kg

DRUGS (11)
  1. PREDNISOLONE. [Concomitant]
     Active Substance: PREDNISOLONE
     Dates: start: 20050111, end: 20050111
  2. REMICADE [Suspect]
     Active Substance: INFLIXIMAB
     Indication: ANKYLOSING SPONDYLITIS
     Route: 042
     Dates: start: 20030805, end: 20040210
  3. ENBREL [Suspect]
     Active Substance: ETANERCEPT
     Indication: ANKYLOSING SPONDYLITIS
     Route: 058
     Dates: start: 20040511, end: 20041130
  4. PREDNISOLONE. [Concomitant]
     Active Substance: PREDNISOLONE
     Dates: start: 20100216, end: 20110331
  5. SIMPONI [Suspect]
     Active Substance: GOLIMUMAB
     Indication: ANKYLOSING SPONDYLITIS
     Dosage: 50 MG MONTHLY.
     Route: 058
     Dates: start: 20100603, end: 20111001
  6. PREDNISOLONE. [Concomitant]
     Active Substance: PREDNISOLONE
     Dates: start: 20040511, end: 20040511
  7. REMICADE [Suspect]
     Active Substance: INFLIXIMAB
     Indication: ANKYLOSING SPONDYLITIS
     Route: 042
     Dates: start: 20050804, end: 20100201
  8. SALAZOPYRIN [Concomitant]
     Active Substance: SULFASALAZINE
     Route: 048
     Dates: start: 20100216, end: 20110624
  9. METHOTREXATE (METHOTREXATE SODIUM) [Suspect]
     Active Substance: METHOTREXATE SODIUM
     Indication: ANKYLOSING SPONDYLITIS
     Dosage: 7.5-25 MG WEEKLY
     Route: 048
     Dates: start: 20030805
  10. HUMIRA [Suspect]
     Active Substance: ADALIMUMAB
     Indication: ANKYLOSING SPONDYLITIS
     Dosage: 40 MG EVERY SECOND WEEK.
     Route: 058
     Dates: start: 20050111, end: 20050111
  11. PREDNISOLONE. [Concomitant]
     Active Substance: PREDNISOLONE
     Dates: start: 20111027

REACTIONS (1)
  - Malignant melanoma [Recovered/Resolved]

NARRATIVE: CASE EVENT DATE: 20121102
